FAERS Safety Report 9496660 (Version 1)
Quarter: 2013Q3

REPORT INFORMATION
  Report Type: Spontaneous
  Country: CH (occurrence: CH)
  Receive Date: 20130904
  Receipt Date: 20130904
  Transmission Date: 20140515
  Serious: Yes (Hospitalization)
  Sender: FDA-Public Use
  Company Number: CH-JNJFOC-20130815063

PATIENT
  Age: 11 Year
  Sex: Female
  Weight: 50 kg

DRUGS (4)
  1. REMICADE [Suspect]
     Indication: JUVENILE IDIOPATHIC ARTHRITIS
     Route: 042
     Dates: start: 2007, end: 20121129
  2. METHOTREXATE [Concomitant]
     Route: 065
     Dates: start: 2003
  3. STEROIDS NOS [Concomitant]
     Route: 065
     Dates: start: 200803
  4. STEROIDS NOS [Concomitant]
     Route: 065
     Dates: start: 200405

REACTIONS (2)
  - Rash maculo-papular [Recovered/Resolved]
  - Pruritus [Recovered/Resolved]
